FAERS Safety Report 17716058 (Version 1)
Quarter: 2020Q2

REPORT INFORMATION
  Report Type: Spontaneous
  Country: US (occurrence: US)
  Receive Date: 20200428
  Receipt Date: 20200428
  Transmission Date: 20200714
  Serious: Yes (Other)
  Sender: FDA-Public Use
  Company Number: US-BEH-2020116473

PATIENT
  Sex: Female

DRUGS (2)
  1. HIZENTRA [Suspect]
     Active Substance: HUMAN IMMUNOGLOBULIN G
     Dosage: 8 GRAM, QW
     Route: 065
  2. HIZENTRA [Suspect]
     Active Substance: HUMAN IMMUNOGLOBULIN G
     Indication: HYPOGAMMAGLOBULINAEMIA
     Dosage: 16 GRAM, QW
     Route: 065
     Dates: start: 2018

REACTIONS (9)
  - Anaemia [Unknown]
  - Injection site erythema [Unknown]
  - Blood immunoglobulin G decreased [Unknown]
  - Oedema peripheral [Unknown]
  - Weight increased [Unknown]
  - Swelling [Unknown]
  - Rash erythematous [Unknown]
  - Injection site pain [Unknown]
  - Infusion site extravasation [Unknown]
